FAERS Safety Report 5124984-1 (Version None)
Quarter: 2006Q4

REPORT INFORMATION
  Report Type: 
  Country: None (occurrence: None)
  Receive Date: 20061011
  Receipt Date: 20061010
  Transmission Date: 20070319
  Serious: Yes (Disabling)
  Sender: FDA-Public Use
  Company Number: US-GLAXOSMITHKLINE-A0623077A

PATIENT
  Age: 65 Year
  Sex: Female

DRUGS (8)
  1. AVANDARYL [Suspect]
     Dosage: 1TAB PER DAY
     Route: 048
     Dates: start: 20060901
  2. ENALAPRIL MALEATE [Concomitant]
  3. METOPROLOL TARTRATE [Concomitant]
  4. RANITIDINE [Concomitant]
  5. CLONAZEPAM [Concomitant]
  6. ALBUTEROL [Concomitant]
     Route: 055
  7. HYDROCHLOROTHIAZDE TAB [Concomitant]
  8. ASPIRIN [Concomitant]

REACTIONS (6)
  - DIABETES MELLITUS INADEQUATE CONTROL [None]
  - PRURITUS [None]
  - RASH [None]
  - RASH GENERALISED [None]
  - RASH PUSTULAR [None]
  - WHEEZING [None]
